FAERS Safety Report 12979214 (Version 1)
Quarter: 2016Q4

REPORT INFORMATION
  Report Type: Spontaneous
  Country: MX (occurrence: MX)
  Receive Date: 20161128
  Receipt Date: 20161128
  Transmission Date: 20170207
  Serious: Yes (Death, Hospitalization)
  Sender: FDA-Public Use
  Company Number: MX-B.I. PHARMACEUTICALS,INC./RIDGEFIELD-2016-BI-33176MX

PATIENT
  Age: 14 Year
  Sex: Male
  Weight: 38 kg

DRUGS (9)
  1. IMUKIN [Suspect]
     Active Substance: INTERFERON GAMMA
     Dosage: STRENGTH: 100MCG/0.5ML
     Route: 058
     Dates: start: 20150724, end: 20160704
  2. MEROPENEM. [Concomitant]
     Active Substance: MEROPENEM
     Indication: BRAIN ABSCESS
     Route: 042
     Dates: start: 20160822
  3. VORICONAZOL [Concomitant]
     Active Substance: VORICONAZOLE
     Indication: BRAIN ABSCESS
     Route: 042
     Dates: start: 20160822, end: 20160904
  4. CEFEPIMA [Concomitant]
     Indication: PYREXIA
     Route: 042
     Dates: start: 20160809, end: 20160822
  5. VANCOMICINA [Concomitant]
     Active Substance: VANCOMYCIN
     Indication: BRAIN ABSCESS
     Route: 042
     Dates: start: 20160822, end: 20160904
  6. METRONIDAZOL [Concomitant]
     Active Substance: METRONIDAZOLE
     Indication: BRAIN ABSCESS
     Route: 042
     Dates: start: 20160820, end: 20160822
  7. IMUKIN [Suspect]
     Active Substance: INTERFERON GAMMA
     Indication: CHRONIC GRANULOMATOUS DISEASE
     Route: 058
     Dates: start: 20150724
  8. DICLOXACILINA [Concomitant]
     Indication: PYREXIA
     Route: 042
     Dates: start: 20160804, end: 20160822
  9. CASPOFUNGINA [Concomitant]
     Indication: BRAIN ABSCESS
     Route: 042
     Dates: start: 20160824, end: 20160904

REACTIONS (6)
  - Brain abscess [Fatal]
  - Autoimmune hepatitis [Recovered/Resolved with Sequelae]
  - Pyrexia [Recovered/Resolved with Sequelae]
  - Bronchopulmonary aspergillosis [Fatal]
  - Bone marrow failure [Fatal]
  - Pulmonary haemorrhage [Fatal]

NARRATIVE: CASE EVENT DATE: 20160314
